FAERS Safety Report 6412194-7 (Version None)
Quarter: 2009Q4

REPORT INFORMATION
  Report Type: 
  Country: None (occurrence: None)
  Receive Date: 20091023
  Receipt Date: 20091020
  Transmission Date: 20100525
  Serious: Yes (Death, Hospitalization)
  Sender: FDA-Public Use
  Company Number: A0813015A

PATIENT
  Age: 78 Year
  Sex: Female

DRUGS (1)
  1. AVANDIA [Suspect]
     Route: 048
     Dates: start: 20001001

REACTIONS (9)
  - ANGINA PECTORIS [None]
  - BRAIN HYPOXIA [None]
  - CARDIOVASCULAR DISORDER [None]
  - CHEST PAIN [None]
  - COGNITIVE DISORDER [None]
  - DEATH [None]
  - EMOTIONAL DISORDER [None]
  - OEDEMA [None]
  - WEIGHT INCREASED [None]
